FAERS Safety Report 22392326 (Version 1)
Quarter: 2023Q2

REPORT INFORMATION
  Report Type: Spontaneous
  Country: JP (occurrence: JP)
  Receive Date: 20230601
  Receipt Date: 20230601
  Transmission Date: 20230722
  Serious: Yes (Hospitalization)
  Sender: FDA-Public Use
  Company Number: JP-CHUGAI-2023018227AA

PATIENT
  Age: 84 Year
  Sex: Male
  Weight: 56.2 kg

DRUGS (3)
  1. CAPECITABINE [Suspect]
     Active Substance: CAPECITABINE
     Indication: Rectal cancer
     Dosage: DAILY DOSE: 1800 MILLIGRAM
     Route: 048
     Dates: start: 20230404, end: 20230406
  2. AVASTIN [Suspect]
     Active Substance: BEVACIZUMAB
     Indication: Rectal cancer
     Dosage: ROA:INTRAVENOUS DRIP
     Route: 042
     Dates: start: 20230404, end: 20230404
  3. OXALIPLATIN [Suspect]
     Active Substance: OXALIPLATIN
     Indication: Rectal cancer
     Dosage: ROA:INTRAVENOUS DRIP
     Route: 042
     Dates: start: 20230404, end: 20230404

REACTIONS (1)
  - Rectal perforation [Recovering/Resolving]

NARRATIVE: CASE EVENT DATE: 20230407
